FAERS Safety Report 11647091 (Version 1)
Quarter: 2015Q4

REPORT INFORMATION
  Report Type: Report from Study
  Country: US (occurrence: US)
  Receive Date: 20151021
  Receipt Date: 20151021
  Transmission Date: 20160304
  Serious: Yes (Other)
  Sender: FDA-Public Use
  Company Number: US-AMGEN-USASL2015106938

PATIENT
  Age: 40 Year
  Sex: Female

DRUGS (2)
  1. ENBREL [Suspect]
     Active Substance: ETANERCEPT
     Indication: RHEUMATOID ARTHRITIS
     Dosage: UNK UNK, UNK
     Route: 065
     Dates: start: 2008
  2. METHOTREXATE [Concomitant]
     Active Substance: METHOTREXATE

REACTIONS (11)
  - Skin exfoliation [Unknown]
  - Nasal congestion [Unknown]
  - Adverse event [Unknown]
  - Condition aggravated [Unknown]
  - Hypersensitivity [Unknown]
  - Cough [Recovering/Resolving]
  - Knee arthroplasty [Unknown]
  - Speech disorder [Unknown]
  - Onychomycosis [Unknown]
  - Hypophagia [Unknown]
  - Immune system disorder [Unknown]
